FAERS Safety Report 5663414-8 (Version None)
Quarter: 2008Q1

REPORT INFORMATION
  Report Type: 
  Country: None (occurrence: None)
  Receive Date: 20080313
  Receipt Date: 20080306
  Transmission Date: 20080703
  Serious: Yes (Hospitalization)
  Sender: FDA-Public Use
  Company Number: FR-ABBOTT-07P-056-0366141-02

PATIENT
  Sex: Female
  Weight: 53 kg

DRUGS (12)
  1. HUMIRA [Suspect]
     Indication: RHEUMATOID ARTHRITIS
     Dates: start: 20040405, end: 20070206
  2. PREDNISONE TAB [Concomitant]
     Indication: RHEUMATOID ARTHRITIS
     Dates: start: 19911001
  3. FENOFIBRATE [Concomitant]
     Indication: HYPERLIPIDAEMIA
  4. FUROSEMIDE [Concomitant]
     Indication: HYPERTENSION
  5. COMMERCIAL HUMIRA [Concomitant]
     Indication: RHEUMATOID ARTHRITIS
     Dates: start: 20031101
  6. OMEPRAZOLE [Concomitant]
     Indication: PROPHYLAXIS
  7. OMEPRAZOLE [Concomitant]
     Indication: GASTROINTESTINAL DISORDER
  8. BROMAZEPAM [Concomitant]
     Indication: ANXIETY
  9. MACROGOL [Concomitant]
     Indication: LAXATIVE SUPPORTIVE CARE
  10. POTASSIUM CHLORIDE [Concomitant]
     Indication: PROPHYLAXIS
  11. POTASSIUM CHLORIDE [Concomitant]
     Indication: HYPOKALAEMIA
  12. FENTANYL [Concomitant]
     Indication: RHEUMATOID ARTHRITIS
     Route: 061

REACTIONS (1)
  - SKIN NECROSIS [None]
